FAERS Safety Report 8599232-0 (Version None)
Quarter: 2012Q3

REPORT INFORMATION
  Report Type: 
  Country: None (occurrence: None)
  Receive Date: 20120816
  Receipt Date: 20111209
  Transmission Date: 20120928
  Serious: No
  Sender: FDA-Public Use
  Company Number: US-AMGEN-USASP2011066392

PATIENT
  Sex: Female

DRUGS (4)
  1. NEULASTA [Suspect]
     Dates: start: 20110101
  2. NEUPOGEN [Suspect]
     Indication: BREAST CANCER
     Dosage: 6 MG, Q3WK
     Route: 058
     Dates: start: 20110101
  3. NEULASTA [Suspect]
     Indication: BREAST CANCER
     Dosage: 6 MG, Q3WK
  4. NEUPOGEN [Suspect]
     Dates: start: 20110101, end: 20110101

REACTIONS (1)
  - INJECTION SITE PAIN [None]
